FAERS Safety Report 9272179 (Version 2)
Quarter: 2013Q2

REPORT INFORMATION
  Report Type: Spontaneous
  Country: US (occurrence: US)
  Receive Date: 20130506
  Receipt Date: 20130606
  Transmission Date: 20140414
  Serious: Yes (Hospitalization, Other)
  Sender: FDA-Public Use
  Company Number: US-PFIZER INC-2013136688

PATIENT
  Age: 76 Year
  Sex: Male
  Weight: 85.71 kg

DRUGS (12)
  1. LIPITOR [Suspect]
     Indication: BLOOD CHOLESTEROL INCREASED
     Dosage: 40 MG, 2X/DAY
     Dates: end: 2012
  2. LIPITOR [Suspect]
     Indication: CORONARY ARTERY OCCLUSION
  3. ATORVASTATIN CALCIUM [Suspect]
     Indication: BLOOD CHOLESTEROL INCREASED
     Dosage: 40 MG, 2X/DAY
     Dates: end: 2012
  4. COREG [Concomitant]
     Indication: CARDIAC DISORDER
     Dosage: UNK
  5. FOLGARD [Concomitant]
     Indication: CARDIAC DISORDER
     Dosage: UNK
  6. PLAVIX [Concomitant]
     Indication: ANTICOAGULANT THERAPY
     Dosage: UNK
  7. ASPIRIN [Concomitant]
     Indication: ANTICOAGULANT THERAPY
     Dosage: UNK
  8. FOLGARD RX [Concomitant]
     Dosage: 2.2 MG, 1X/DAY
  9. BENICAR HCT [Concomitant]
     Dosage: REPORTED AS 40-12.5 MG, ONCE TABLET, 1X/DAY
     Route: 048
  10. BACITRACIN [Concomitant]
     Dosage: 500 UNIT/GM, ONE APPLICATION TO AFFECTED AREA, 1X/DAY
     Route: 061
  11. CARVEDILOL [Concomitant]
     Dosage: 12.5 MG, 2X/DAY. WITH FOOD
  12. DEXAMETHASONE [Concomitant]
     Dosage: 2 MG, 2X/DAY

REACTIONS (7)
  - Intracranial aneurysm [Recovering/Resolving]
  - Cerebral haemorrhage [Unknown]
  - Arterial occlusive disease [Unknown]
  - Generalised oedema [Unknown]
  - Abdominal discomfort [Recovered/Resolved]
  - Asthenia [Unknown]
  - Fatigue [Unknown]
